FAERS Safety Report 4437560-0 (Version None)
Quarter: 2004Q3

REPORT INFORMATION
  Report Type: 
  Country: None (occurrence: None)
  Receive Date: 20040831
  Receipt Date: 20040826
  Transmission Date: 20050211
  Serious: Yes (Hospitalization)
  Sender: FDA-Public Use
  Company Number: 200411963DE

PATIENT
  Age: 68 Year
  Sex: Female

DRUGS (5)
  1. TAXOTERE [Suspect]
     Indication: BREAST CANCER
     Route: 042
     Dates: start: 20040817, end: 20040817
  2. ADRIAMYCIN PFS [Suspect]
     Indication: BREAST CANCER
     Dates: start: 20040817, end: 20040817
  3. CYCLOPHOSPHAMIDE [Suspect]
     Indication: BREAST CANCER
     Dates: start: 20040817, end: 20040817
  4. NAVOBAN [Concomitant]
  5. NEULASTA [Concomitant]

REACTIONS (3)
  - CIRCULATORY COLLAPSE [None]
  - CONSTIPATION [None]
  - HYPOTENSION [None]
